FAERS Safety Report 8184833-4 (Version None)
Quarter: 2012Q1

REPORT INFORMATION
  Report Type: 
  Country: None (occurrence: None)
  Receive Date: 20120210
  Receipt Date: 20110816
  Transmission Date: 20120608
  Serious: Yes (Death, Hospitalization)
  Sender: FDA-Public Use
  Company Number: DAV-AE-MTX-11-048

PATIENT
  Age: 51 Year
  Sex: Female

DRUGS (6)
  1. FOLIC ACID [Concomitant]
  2. METHOTREXATE [Suspect]
     Indication: RHEUMATOID ARTHRITIS
     Dosage: ORAL
     Route: 048
     Dates: start: 20110112
  3. ZOLPIDEM [Concomitant]
  4. PREDNISONE TAB [Concomitant]
  5. TRAZODONE HCL [Concomitant]
  6. PERCOCET [Concomitant]

REACTIONS (1)
  - CHEST PAIN [None]
